FAERS Safety Report 17896563 (Version 1)
Quarter: 2020Q2

REPORT INFORMATION
  Report Type: Spontaneous
  Country: BR (occurrence: BR)
  Receive Date: 20200615
  Receipt Date: 20200615
  Transmission Date: 20200714
  Serious: Yes (Other)
  Sender: FDA-Public Use
  Company Number: BR-SA-CERZ-1002786

PATIENT

DRUGS (2)
  1. CEREZYME [Suspect]
     Active Substance: IMIGLUCERASE
     Dosage: 3 DF
     Route: 042
     Dates: start: 20090203
  2. CEREZYME [Suspect]
     Active Substance: IMIGLUCERASE
     Indication: GAUCHER^S DISEASE TYPE I
     Dosage: 60 U/KG
     Route: 042
     Dates: start: 20090203

REACTIONS (6)
  - Drug ineffective [Unknown]
  - Hepatomegaly [Unknown]
  - Deafness [Unknown]
  - Chitotriosidase increased [Unknown]
  - Pneumonia [Unknown]
  - Splenomegaly [Unknown]

NARRATIVE: CASE EVENT DATE: 202001
